FAERS Safety Report 19873668 (Version 2)
Quarter: 2021Q3

REPORT INFORMATION
  Report Type: Spontaneous
  Country: ES (occurrence: ES)
  Receive Date: 20210922
  Receipt Date: 20210928
  Transmission Date: 20211014
  Serious: Yes (Hospitalization, Other)
  Sender: FDA-Public Use
  Company Number: ES-MYLANLABS-2021M1063951

PATIENT
  Age: 61 Year
  Sex: Female

DRUGS (4)
  1. ACETYLSALICYLIC ACID [Suspect]
     Active Substance: ASPIRIN
     Dosage: 300 MILLIGRAM (300 MG, SINGLE DOSE)
  2. FUROSEMIDE. [Suspect]
     Active Substance: FUROSEMIDE
     Indication: PRODUCT USED FOR UNKNOWN INDICATION
     Dosage: UNK
  3. RIVAROXABAN [Suspect]
     Active Substance: RIVAROXABAN
     Indication: PRODUCT USED FOR UNKNOWN INDICATION
     Dosage: UNK
  4. ACETYLSALICYLIC ACID [Suspect]
     Active Substance: ASPIRIN
     Indication: PRODUCT USED FOR UNKNOWN INDICATION
     Dosage: UNK

REACTIONS (8)
  - Nasal polyps [Recovered/Resolved]
  - Acute myocardial infarction [Unknown]
  - Intentional product misuse [Unknown]
  - Bronchospasm [Recovered/Resolved]
  - Asthma [Recovered/Resolved]
  - Respiratory failure [Recovered/Resolved]
  - Treatment noncompliance [Unknown]
  - Drug intolerance [Recovered/Resolved]
